FAERS Safety Report 7508720-7 (Version None)
Quarter: 2011Q2

REPORT INFORMATION
  Report Type: 
  Country: None (occurrence: None)
  Receive Date: 20110527
  Receipt Date: 20100908
  Transmission Date: 20111010
  Serious: No
  Sender: FDA-Public Use
  Company Number: A0880315A

PATIENT
  Age: 90 Year
  Sex: Female

DRUGS (3)
  1. XYZAL [Concomitant]
  2. VENTOLIN [Suspect]
     Route: 055
  3. THEOPHYLLINE [Concomitant]

REACTIONS (1)
  - DRUG INEFFECTIVE [None]
